FAERS Safety Report 14119467 (Version 2)
Quarter: 2017Q4

REPORT INFORMATION
  Report Type: Spontaneous
  Country: US (occurrence: US)
  Receive Date: 20171024
  Receipt Date: 20171129
  Transmission Date: 20180321
  Serious: No
  Sender: FDA-Public Use
  Company Number: US-PFIZER INC-2017454709

PATIENT
  Age: 75 Year
  Sex: Female
  Weight: 56.7 kg

DRUGS (7)
  1. ADVIL [Suspect]
     Active Substance: IBUPROFEN
     Dosage: WOULD TAKE 3 AT ONCE FOR 600MG 4 TIMES A DAY, EVERY 6 HOURS
     Dates: start: 20171016, end: 20171018
  2. LISINOPRIL. [Concomitant]
     Active Substance: LISINOPRIL
     Dosage: UNK
  3. SYNTHROID [Concomitant]
     Active Substance: LEVOTHYROXINE SODIUM
     Dosage: UNK
  4. ATENOLOL. [Concomitant]
     Active Substance: ATENOLOL
     Dosage: UNK
  5. ATORVASTATIN [Concomitant]
     Active Substance: ATORVASTATIN
     Dosage: UNK
  6. FENOFIBRATE. [Suspect]
     Active Substance: FENOFIBRATE
  7. ADVIL [Suspect]
     Active Substance: IBUPROFEN
     Indication: DENTAL CARE
     Dosage: FIRST TRIED THE ADVIL LIQUIGEL MINI^S IN MID SEP2017
     Dates: start: 201709, end: 201709

REACTIONS (5)
  - Limb discomfort [Not Recovered/Not Resolved]
  - Pain in extremity [Not Recovered/Not Resolved]
  - Peripheral swelling [Recovering/Resolving]
  - Tremor [Not Recovered/Not Resolved]
  - Overdose [Unknown]

NARRATIVE: CASE EVENT DATE: 201709
